FAERS Safety Report 18159972 (Version 2)
Quarter: 2020Q3

REPORT INFORMATION
  Report Type: Spontaneous
  Country: US (occurrence: US)
  Receive Date: 20200817
  Receipt Date: 20200819
  Transmission Date: 20201103
  Serious: Yes (Other)
  Sender: FDA-Public Use
  Company Number: NVSC2020US223738

PATIENT
  Sex: Female

DRUGS (1)
  1. ZOLGENSMA [Suspect]
     Active Substance: ONASEMNOGENE ABEPARVOVEC-XIOI
     Indication: SPINAL MUSCULAR ATROPHY
     Dosage: 1 OT, ONCE/SINGLE
     Route: 042
     Dates: start: 20190829

REACTIONS (3)
  - Hypotonia [Recovered/Resolved]
  - Astigmatism [Unknown]
  - Scoliosis [Unknown]
